FAERS Safety Report 25189759 (Version 1)
Quarter: 2025Q2

REPORT INFORMATION
  Report Type: Report from Study
  Country: AE (occurrence: AE)
  Receive Date: 20250411
  Receipt Date: 20250411
  Transmission Date: 20250717
  Serious: Yes (Other)
  Sender: ROCHE
  Company Number: AE-ROCHE-10000250819

PATIENT
  Age: 50 Year
  Sex: Male

DRUGS (2)
  1. ALECENSA [Suspect]
     Active Substance: ALECTINIB HYDROCHLORIDE
     Indication: Product used for unknown indication
     Route: 065
     Dates: end: 202307
  2. ATORVASTATIN [Concomitant]
     Active Substance: ATORVASTATIN

REACTIONS (7)
  - Pain [Unknown]
  - Dyspnoea [Unknown]
  - Disease progression [Unknown]
  - Haemorrhage [Unknown]
  - Headache [Unknown]
  - Dizziness [Unknown]
  - Dyslipidaemia [Unknown]
